FAERS Safety Report 15769198 (Version 1)
Quarter: 2018Q4

REPORT INFORMATION
  Report Type: Spontaneous
  Country: US (occurrence: US)
  Receive Date: 20181228
  Receipt Date: 20181228
  Transmission Date: 20190205
  Serious: No
  Sender: FDA-Public Use
  Company Number: US-JNJFOC-20181140599

PATIENT
  Sex: Female

DRUGS (15)
  1. LANOXIN [Concomitant]
     Active Substance: DIGOXIN
  2. TRUSOPT [Concomitant]
     Active Substance: DORZOLAMIDE HYDROCHLORIDE
     Route: 047
  3. BONIVA [Concomitant]
     Active Substance: IBANDRONATE SODIUM
  4. IBRUTINIB [Concomitant]
     Active Substance: IBRUTINIB
  5. IMBRUVICA [Suspect]
     Active Substance: IBRUTINIB
     Indication: WALDENSTROM^S MACROGLOBULINAEMIA
     Route: 048
  6. GENTAMICIN. [Concomitant]
     Active Substance: GENTAMICIN
  7. SODIUM CHLORIDE. [Concomitant]
     Active Substance: SODIUM CHLORIDE
  8. IMBRUVICA [Suspect]
     Active Substance: IBRUTINIB
     Indication: WALDENSTROM^S MACROGLOBULINAEMIA
     Route: 048
  9. ZOCOR [Concomitant]
     Active Substance: SIMVASTATIN
  10. LASIX [Concomitant]
     Active Substance: FUROSEMIDE
  11. SIMBRINZA [Concomitant]
     Active Substance: BRIMONIDINE TARTRATE\BRINZOLAMIDE
     Dosage: 1-0.2% DROPS
  12. KENALOG [Concomitant]
     Active Substance: TRIAMCINOLONE ACETONIDE
  13. LOTREL [Concomitant]
     Active Substance: AMLODIPINE BESYLATE\BENAZEPRIL HYDROCHLORIDE
     Dosage: 5-20 MG PER CAPSULE
  14. TENORMIN [Concomitant]
     Active Substance: ATENOLOL
  15. MACROGOL 3350 [Concomitant]
     Active Substance: POLYETHYLENE GLYCOL 3350
     Dosage: 420 G,SOLUTION

REACTIONS (2)
  - Osteoarthritis [Unknown]
  - Lower gastrointestinal haemorrhage [Unknown]
